FAERS Safety Report 13597810 (Version 1)
Quarter: 2017Q2

REPORT INFORMATION
  Report Type: Report from Study
  Country: US (occurrence: US)
  Receive Date: 20170531
  Receipt Date: 20170531
  Transmission Date: 20170830
  Serious: Yes (Hospitalization, Other)
  Sender: FDA-Public Use
  Company Number: US-AMGEN-USASL2017081103

PATIENT
  Age: 63 Year
  Sex: Female

DRUGS (3)
  1. REPATHA [Suspect]
     Active Substance: EVOLOCUMAB
     Indication: BLOOD CHOLESTEROL INCREASED
     Dosage: UNK UNK, Q2WK
     Route: 065
  2. NEXIUM [Concomitant]
     Active Substance: ESOMEPRAZOLE MAGNESIUM
     Dosage: UNK
  3. ALOEVERA EXTRA [Concomitant]
     Dosage: UNK

REACTIONS (8)
  - Gastrooesophageal reflux disease [Unknown]
  - Intestinal operation [Unknown]
  - Bladder operation [Unknown]
  - Pain in extremity [Unknown]
  - Post procedural infection [Unknown]
  - Diverticulitis [Unknown]
  - Back pain [Unknown]
  - Unevaluable event [Unknown]

NARRATIVE: CASE EVENT DATE: 201705
